FAERS Safety Report 8620512-4 (Version None)
Quarter: 2012Q3

REPORT INFORMATION
  Report Type: 
  Country: None (occurrence: None)
  Receive Date: 20120824
  Receipt Date: 20120730
  Transmission Date: 20120928
  Serious: Yes (Hospitalization, Other)
  Sender: FDA-Public Use
  Company Number: IL-ELI_LILLY_AND_COMPANY-IL201206006206

PATIENT
  Age: 80 Year
  Sex: Female

DRUGS (1)
  1. FORTEO [Suspect]
     Dosage: UNK
     Dates: end: 20120401

REACTIONS (3)
  - BENCE JONES PROTEIN URINE PRESENT [None]
  - SPINAL FRACTURE [None]
  - PULMONARY FIBROSIS [None]
